FAERS Safety Report 8283356-1 (Version None)
Quarter: 2012Q2

REPORT INFORMATION
  Report Type: 
  Country: None (occurrence: None)
  Receive Date: 20120413
  Receipt Date: 20120410
  Transmission Date: 20120825
  Serious: Yes (Life-Threatening, Hospitalization)
  Sender: FDA-Public Use
  Company Number: MX-B.I. PHARMACEUTICALS,INC./RIDGEFIELD-2012-MX-00121MX

PATIENT
  Age: 85 Year
  Sex: Female

DRUGS (6)
  1. AMIODARONA [Concomitant]
     Indication: ATRIAL FIBRILLATION
     Dosage: 400 MG
     Route: 048
  2. FUROSEMIDE [Concomitant]
     Indication: DIURETIC THERAPY
     Dosage: 30 MG
     Route: 048
  3. DIGOXIN [Concomitant]
     Indication: ATRIAL FIBRILLATION
     Dosage: 0.625 MG
     Route: 048
  4. POTASSIUM [Concomitant]
     Indication: DIURETIC THERAPY
     Route: 048
  5. DABIGATRAN ETEXILATE [Suspect]
     Indication: CEREBROVASCULAR ACCIDENT PROPHYLAXIS
     Dosage: 300 MG
     Route: 048
     Dates: start: 20110601, end: 20111001
  6. CAPTOPRIL [Concomitant]
     Indication: CARDIAC FAILURE
     Dosage: 75 MG
     Route: 048

REACTIONS (1)
  - CEREBROVASCULAR ACCIDENT [None]
